FAERS Safety Report 5283085-2 (Version None)
Quarter: 2007Q2

REPORT INFORMATION
  Report Type: 
  Country: None (occurrence: None)
  Receive Date: 20070402
  Receipt Date: 20070326
  Transmission Date: 20071010
  Serious: Yes (Hospitalization)
  Sender: FDA-Public Use
  Company Number: US-AVENTIS-200619573US

PATIENT
  Age: 26 Year
  Sex: Female

DRUGS (1)
  1. ALLEGRA D 24 HOUR [Suspect]
     Indication: NASAL CONGESTION
     Dosage: DOSE: UNK
     Route: 048
     Dates: start: 20061121, end: 20061121

REACTIONS (3)
  - CHEST PAIN [None]
  - DYSPHAGIA [None]
  - FOREIGN BODY TRAUMA [None]
